FAERS Safety Report 21698727 (Version 3)
Quarter: 2023Q1

REPORT INFORMATION
  Report Type: Report from Study
  Country: US (occurrence: US)
  Receive Date: 20221208
  Receipt Date: 20230322
  Transmission Date: 20230417
  Serious: Yes (Hospitalization, Other)
  Sender: FDA-Public Use
  Company Number: US-002147023-NVSC2022US282440

PATIENT
  Age: 50 Year
  Sex: Female

DRUGS (3)
  1. KISQALI [Suspect]
     Active Substance: RIBOCICLIB
     Indication: Breast cancer metastatic
     Dosage: UNK
     Route: 048
     Dates: start: 202001
  2. KISQALI [Suspect]
     Active Substance: RIBOCICLIB
     Dosage: UNK, OTHER (TAKE IT 3 WEEKS AND ONE WEEK OFF)
     Route: 048
     Dates: start: 202007
  3. KISQALI [Suspect]
     Active Substance: RIBOCICLIB
     Dosage: UNK
     Route: 048
     Dates: end: 202303

REACTIONS (15)
  - Infection [Unknown]
  - White blood cell count decreased [Unknown]
  - Red blood cell count decreased [Not Recovered/Not Resolved]
  - Loss of consciousness [Recovered/Resolved]
  - Metastases to central nervous system [Not Recovered/Not Resolved]
  - Metastases to lung [Not Recovered/Not Resolved]
  - Metastases to bone [Not Recovered/Not Resolved]
  - Hot flush [Not Recovered/Not Resolved]
  - Sinus headache [Unknown]
  - Dry skin [Unknown]
  - Fatigue [Unknown]
  - Decreased appetite [Unknown]
  - Nausea [Recovered/Resolved]
  - Cough [Recovering/Resolving]
  - Nasopharyngitis [Unknown]

NARRATIVE: CASE EVENT DATE: 20220401
